FAERS Safety Report 19223691 (Version 1)
Quarter: 2021Q2

REPORT INFORMATION
  Report Type: Spontaneous
  Country: CN (occurrence: CN)
  Receive Date: 20210506
  Receipt Date: 20210506
  Transmission Date: 20210717
  Serious: Yes (Hospitalization)
  Sender: FDA-Public Use
  Company Number: CN-BAYER-2021-135890

PATIENT
  Age: 85 Year
  Sex: Male
  Weight: 65 kg

DRUGS (3)
  1. METFORMIN HYDROCHLORIDE. [Suspect]
     Active Substance: METFORMIN HYDROCHLORIDE
     Indication: DIABETES MELLITUS
     Dosage: 0.5 G, BID
     Route: 048
     Dates: start: 20210108, end: 20210421
  2. GLICLAZIDE [Suspect]
     Active Substance: GLICLAZIDE
     Indication: DIABETES MELLITUS
     Dosage: 80 MG, BID
     Route: 048
     Dates: start: 20210108, end: 20210421
  3. GLUCOBAY [Suspect]
     Active Substance: ACARBOSE
     Indication: DIABETES MELLITUS
     Dosage: 50 MG, BID
     Route: 048
     Dates: start: 20210108, end: 20210421

REACTIONS (8)
  - Diarrhoea [None]
  - Decreased appetite [Recovering/Resolving]
  - Loss of consciousness [Recovering/Resolving]
  - Wrist fracture [None]
  - Speech disorder [Recovering/Resolving]
  - Hypoglycaemic coma [Recovering/Resolving]
  - Fall [None]
  - Arthralgia [None]

NARRATIVE: CASE EVENT DATE: 20210418
